FAERS Safety Report 5357192-X (Version None)
Quarter: 2007Q2

REPORT INFORMATION
  Report Type: 
  Country: None (occurrence: None)
  Receive Date: 20070614
  Receipt Date: 20070613
  Transmission Date: 20071010
  Serious: Yes (Hospitalization)
  Sender: FDA-Public Use
  Company Number: HQWYE337924MAY07

PATIENT
  Sex: Male

DRUGS (2)
  1. CORDARONE [Suspect]
     Indication: ATRIAL FIBRILLATION
     Route: 048
     Dates: start: 20070222, end: 20070228
  2. CORDARONE [Suspect]
     Route: 048
     Dates: start: 20070301, end: 20070515

REACTIONS (1)
  - OPTIC NERVE INFARCTION [None]
